FAERS Safety Report 21865589 (Version 1)
Quarter: 2023Q1

REPORT INFORMATION
  Report Type: Spontaneous
  Country: MY (occurrence: MY)
  Receive Date: 20230116
  Receipt Date: 20230116
  Transmission Date: 20230418
  Serious: Yes (Other)
  Sender: FDA-Public Use
  Company Number: MY-TORRENT-00000351

PATIENT
  Age: 84 Year
  Sex: Male

DRUGS (1)
  1. LEVETIRACETAM [Suspect]
     Active Substance: LEVETIRACETAM
     Indication: Temporal lobe epilepsy
     Dosage: UNKNOWN
     Route: 065

REACTIONS (3)
  - Condition aggravated [Recovered/Resolved]
  - Productive cough [Recovered/Resolved]
  - Product substitution issue [Unknown]
